FAERS Safety Report 7550299-8 (Version None)
Quarter: 2011Q2

REPORT INFORMATION
  Report Type: 
  Country: None (occurrence: None)
  Receive Date: 20110615
  Receipt Date: 20110606
  Transmission Date: 20111010
  Serious: Yes (Hospitalization)
  Sender: FDA-Public Use
  Company Number: ES-PERRIGO-11ES004642

PATIENT
  Age: 44 Year
  Sex: Male

DRUGS (9)
  1. RANITIDINE [Concomitant]
     Indication: PRODUCT USED FOR UNKNOWN INDICATION
     Dosage: UNK
     Route: 048
  2. AMLODIPINE [Concomitant]
     Indication: PRODUCT USED FOR UNKNOWN INDICATION
     Dosage: UNK
     Route: 048
  3. RAPAMYCIN [Concomitant]
     Indication: RENAL TRANSPLANT
     Dosage: UNK
     Route: 048
     Dates: start: 20050101
  4. ATORVASTATIN [Concomitant]
     Indication: PRODUCT USED FOR UNKNOWN INDICATION
     Dosage: UNK
     Route: 048
  5. IMIQUIMOD [Suspect]
     Indication: SKIN PAPILLOMA
     Dosage: 1 APPLICATION, EVERY 48 HOURS
     Route: 061
  6. MYCOPHENOLATE MEFETIL [Concomitant]
     Indication: IMMUNOSUPPRESSANT DRUG THERAPY
     Dosage: UNK
     Route: 048
     Dates: start: 20030101
  7. PREDNISONE [Concomitant]
     Indication: RENAL TRANSPLANT
     Dosage: UNK
     Route: 048
     Dates: start: 19870101
  8. ACETYL SALICYLIC ACID COMPOUND TAB [Concomitant]
     Indication: PRODUCT USED FOR UNKNOWN INDICATION
     Route: 065
  9. FLECAINIDE ACETATE [Concomitant]
     Indication: PRODUCT USED FOR UNKNOWN INDICATION
     Dosage: UNK
     Route: 048

REACTIONS (9)
  - BACK PAIN [None]
  - OROPHARYNGEAL PAIN [None]
  - ASTHENIA [None]
  - PYREXIA [None]
  - MALAISE [None]
  - RENAL TUBULAR NECROSIS [None]
  - DIZZINESS [None]
  - ANURIA [None]
  - RENAL FAILURE ACUTE [None]
